FAERS Safety Report 4559305-6 (Version None)
Quarter: 2005Q1

REPORT INFORMATION
  Report Type: 
  Country: None (occurrence: None)
  Receive Date: 20050124
  Receipt Date: 20050117
  Transmission Date: 20050727
  Serious: Yes (Death)
  Sender: FDA-Public Use
  Company Number: US-JNJFOC-20050103972

PATIENT
  Age: 81 Year
  Sex: Male

DRUGS (7)
  1. DURAGESIC [Suspect]
     Indication: CANCER PAIN
     Route: 062
  2. SIMVASTATIN [Concomitant]
  3. CHEMOTHERAPY [Concomitant]
  4. RADIATION THERAPY [Concomitant]
  5. PROTONIX [Concomitant]
  6. FLOMAX [Concomitant]
     Indication: CYSTITIS
  7. STOOL SOFTENER [Concomitant]

REACTIONS (1)
  - BLADDER CANCER [None]
